FAERS Safety Report 8305443-1 (Version None)
Quarter: 2012Q2

REPORT INFORMATION
  Report Type: 
  Country: None (occurrence: None)
  Receive Date: 20120423
  Receipt Date: 20120413
  Transmission Date: 20120825
  Serious: Yes (Death)
  Sender: FDA-Public Use
  Company Number: PL-GLAXOSMITHKLINE-Z0014693B

PATIENT
  Sex: Female
  Weight: 61 kg

DRUGS (1)
  1. OFATUMUMAB [Suspect]
     Indication: CHRONIC LYMPHOCYTIC LEUKAEMIA REFRACTORY
     Route: 042
     Dates: start: 20120206

REACTIONS (2)
  - PNEUMONIA [None]
  - CARDIAC FAILURE [None]
